FAERS Safety Report 8306851-5 (Version None)
Quarter: 2012Q1

REPORT INFORMATION
  Report Type: 
  Country: None (occurrence: None)
  Receive Date: 20120327
  Receipt Date: 20090720
  Transmission Date: 20120608
  Serious: Yes (Death, Hospitalization)
  Sender: FDA-Public Use
  Company Number: PHEH2007US16330

PATIENT
  Age: 79 Year
  Sex: Female

DRUGS (5)
  1. PROTONIX [Concomitant]
  2. LORAZEPAM [Concomitant]
  3. GLEEVEC [Suspect]
     Indication: GASTROINTESTINAL STROMAL TUMOUR
     Dosage: 400 MG, QD, ORAL
     Route: 048
     Dates: start: 20070824
  4. ZOFRAN (ODNANSETRON HYDROCHLORIDE) [Concomitant]
  5. OXYCODONE HCL [Concomitant]

REACTIONS (2)
  - NEOPLASM PROGRESSION [None]
  - GASTROINTESTINAL HAEMORRHAGE [None]
